FAERS Safety Report 4861538-6 (Version None)
Quarter: 2005Q4

REPORT INFORMATION
  Report Type: 
  Country: None (occurrence: None)
  Receive Date: 20051220
  Receipt Date: 20051208
  Transmission Date: 20060501
  Serious: Yes (Hospitalization, Other)
  Sender: FDA-Public Use
  Company Number: HU-BRISTOL-MYERS SQUIBB COMPANY-13208319

PATIENT
  Age: 38 Year
  Sex: Female

DRUGS (6)
  1. CISPLATIN [Suspect]
     Indication: METASTATIC GASTRIC CANCER
     Route: 041
     Dates: start: 20051109, end: 20051109
  2. FLUOROURACIL [Suspect]
     Indication: METASTATIC GASTRIC CANCER
     Route: 041
     Dates: start: 20051109, end: 20051114
  3. ONDANSETRON [Concomitant]
     Indication: PROPHYLAXIS
     Route: 042
     Dates: start: 20051109, end: 20051114
  4. DIAZEPAM [Concomitant]
     Indication: PROPHYLAXIS
     Route: 042
     Dates: start: 20051109, end: 20051113
  5. ONDANSETRON [Concomitant]
     Route: 048
     Dates: start: 20051114
  6. DEXAMETHASONE [Concomitant]
     Indication: NAUSEA
     Route: 042
     Dates: start: 20051116, end: 20051118

REACTIONS (4)
  - MUCOSAL INFLAMMATION [None]
  - NAUSEA [None]
  - NEUTROPENIA [None]
  - THROMBOCYTOPENIA [None]
